FAERS Safety Report 4721827-2 (Version None)
Quarter: 2005Q3

REPORT INFORMATION
  Report Type: 
  Country: None (occurrence: None)
  Receive Date: 20050721
  Receipt Date: 20050502
  Transmission Date: 20060218
  Serious: No
  Sender: FDA-Public Use
  Company Number: US-BRISTOL-MYERS SQUIBB COMPANY-12952669

PATIENT
  Age: 79 Year
  Sex: Female
  Weight: 68 kg

DRUGS (4)
  1. COUMADIN [Suspect]
     Indication: ARRHYTHMIA
     Dosage: 5 MG EVERY DAY, EXCEPT TUESDAY AND THURSDAY WHEN DOSAGE IS 7.5 MG
  2. LEXAPRO [Concomitant]
  3. BUSPAR [Concomitant]
  4. SOTALOL HCL [Concomitant]

REACTIONS (2)
  - BURNING SENSATION [None]
  - DRY SKIN [None]
